FAERS Safety Report 5751879-2 (Version None)
Quarter: 2008Q2

REPORT INFORMATION
  Report Type: 
  Country: None (occurrence: None)
  Receive Date: 20080529
  Receipt Date: 20080519
  Transmission Date: 20081010
  Serious: Yes (Hospitalization, Other)
  Sender: FDA-Public Use
  Company Number: US-BAYER-200716757NA

PATIENT
  Age: 15 Month
  Sex: Male

DRUGS (7)
  1. CAMPATH [Suspect]
     Indication: MALIGNANT HISTIOCYTOSIS
     Dosage: UNIT DOSE: 30 MG/ML
     Route: 058
     Dates: start: 20071212
  2. CAMPATH [Suspect]
     Dates: start: 20071201
  3. METHOTREXATE [Concomitant]
     Indication: MALIGNANT HISTIOCYTOSIS
  4. CYCLOSPORINE [Concomitant]
     Indication: MALIGNANT HISTIOCYTOSIS
  5. DEXAMETHASONE TAB [Concomitant]
     Indication: MALIGNANT HISTIOCYTOSIS
  6. BACTRIM [Concomitant]
  7. FLUCONAZOLE [Concomitant]

REACTIONS (3)
  - CHILLS [None]
  - CONVULSION [None]
  - HYPERTENSION [None]
